FAERS Safety Report 9929411 (Version 1)
Quarter: 2014Q1

REPORT INFORMATION
  Report Type: Spontaneous
  Country: IT (occurrence: IT)
  Receive Date: 20140227
  Receipt Date: 20140227
  Transmission Date: 20141002
  Serious: Yes (Hospitalization)
  Sender: FDA-Public Use
  Company Number: IT-BAYER-2014-030455

PATIENT
  Age: 18 Year
  Sex: Female

DRUGS (1)
  1. ASPIRINA [Suspect]
     Indication: DRUG ABUSE
     Dosage: 10000 MG, ONCE
     Route: 048
     Dates: start: 20140127, end: 20140127

REACTIONS (3)
  - Haemorrhage [Recovered/Resolved]
  - Drug abuse [Recovered/Resolved]
  - Sopor [Recovered/Resolved]
